FAERS Safety Report 16842691 (Version 1)
Quarter: 2019Q3

REPORT INFORMATION
  Report Type: Spontaneous
  Country: US (occurrence: US)
  Receive Date: 20190731
  Receipt Date: 20190731
  Transmission Date: 20191005
  Serious: No
  Sender: FDA-Public Use
  Company Number: None

PATIENT
  Age: 70 Year
  Sex: Female

DRUGS (2)
  1. BRIMONIDINE TARTRATE. [Suspect]
     Active Substance: BRIMONIDINE TARTRATE
     Indication: EYE DISORDER
     Dosage: ?          QUANTITY:2 GTT DROP(S);?
     Route: 031
     Dates: start: 20181109, end: 20181114
  2. VITAMINS [Concomitant]
     Active Substance: VITAMINS

REACTIONS (2)
  - Hallucination [None]
  - Nightmare [None]

NARRATIVE: CASE EVENT DATE: 20181110
